FAERS Safety Report 13860266 (Version 2)
Quarter: 2017Q3

REPORT INFORMATION
  Report Type: Spontaneous
  Country: JP (occurrence: JP)
  Receive Date: 20170811
  Receipt Date: 20170818
  Transmission Date: 20171127
  Serious: Yes (Death, Other)
  Sender: FDA-Public Use
  Company Number: JP-ABBVIE-17P-087-2066215-00

PATIENT
  Age: 82 Year
  Sex: Female

DRUGS (3)
  1. FLUNITRAZEPAM [Concomitant]
     Active Substance: FLUNITRAZEPAM
     Indication: PRODUCT USED FOR UNKNOWN INDICATION
     Dates: start: 20170712
  2. VIEKIRAX [Suspect]
     Active Substance: OMBITASVIR\PARITAPREVIR\RITONAVIR
     Indication: HEPATIC CIRRHOSIS
     Route: 048
     Dates: start: 20170703, end: 20170805
  3. MEROPENEM. [Concomitant]
     Active Substance: MEROPENEM
     Indication: PRODUCT USED FOR UNKNOWN INDICATION
     Dates: start: 20170728, end: 20170803

REACTIONS (10)
  - Disseminated intravascular coagulation [Fatal]
  - C-reactive protein increased [Unknown]
  - Hepatic failure [Fatal]
  - Haemorrhage urinary tract [Fatal]
  - Loss of personal independence in daily activities [Recovering/Resolving]
  - Bacterial sepsis [Unknown]
  - Pneumonia [Fatal]
  - Aspartate aminotransferase increased [Unknown]
  - Gastrointestinal haemorrhage [Fatal]
  - Alanine aminotransferase increased [Unknown]

NARRATIVE: CASE EVENT DATE: 20170728
